FAERS Safety Report 6522357-8 (Version None)
Quarter: 2009Q4

REPORT INFORMATION
  Report Type: 
  Country: None (occurrence: None)
  Receive Date: 20091229
  Receipt Date: 20091229
  Transmission Date: 20100525
  Serious: Yes (Life-Threatening, Hospitalization)
  Sender: FDA-Public Use
  Company Number: None

PATIENT
  Sex: Male
  Weight: 72.3 kg

DRUGS (15)
  1. ZOLPIDEM [Suspect]
     Indication: INSOMNIA
     Dosage: 10MG PO Q HS
     Route: 048
     Dates: start: 20090901, end: 20091005
  2. MARINOL [Suspect]
     Indication: DECREASED APPETITE
     Dosage: 2.5MG PO BID
     Route: 048
     Dates: start: 20090901, end: 20091005
  3. ADVAIR DISKUS 100/50 [Concomitant]
  4. VENTOLIN [Concomitant]
  5. ASPIRIN [Concomitant]
  6. LISINOPRIL [Concomitant]
  7. METOPROLOL TARTRATE [Concomitant]
  8. SPIRONOLACTONE [Concomitant]
  9. SIMVASTATIN [Concomitant]
  10. MARINOL [Concomitant]
  11. PRILOSEC [Concomitant]
  12. CEFEPIME [Concomitant]
  13. FLAGYL [Concomitant]
  14. LINEZOLID [Concomitant]
  15. FLUCONAZOLE [Concomitant]

REACTIONS (2)
  - FALL [None]
  - SEDATION [None]
